FAERS Safety Report 7820925-4 (Version None)
Quarter: 2011Q4

REPORT INFORMATION
  Report Type: 
  Country: None (occurrence: None)
  Receive Date: 20111018
  Receipt Date: 20111011
  Transmission Date: 20120403
  Serious: Yes (Hospitalization, Other)
  Sender: FDA-Public Use
  Company Number: FR-GLAXOSMITHKLINE-B0727777A

PATIENT
  Sex: Female
  Weight: 74 kg

DRUGS (4)
  1. ANAFRANIL [Concomitant]
     Indication: DEPRESSION
     Route: 042
     Dates: start: 20110201
  2. PAROXETINE HCL [Suspect]
     Indication: DEPRESSION
     Route: 065
  3. ENBREL [Suspect]
     Indication: SPONDYLITIS
     Dosage: 50MG WEEKLY
     Route: 065
     Dates: start: 20080101
  4. ESCITALOPRAM OXALATE [Suspect]
     Indication: DEPRESSION
     Route: 065
     Dates: start: 20110101, end: 20110101

REACTIONS (6)
  - SUICIDAL IDEATION [None]
  - CRYING [None]
  - MENTAL DISORDER [None]
  - MAJOR DEPRESSION [None]
  - CONVERSION DISORDER [None]
  - TREMOR [None]
